FAERS Safety Report 4370783-8 (Version None)
Quarter: 2004Q2

REPORT INFORMATION
  Report Type: 
  Country: None (occurrence: None)
  Receive Date: 20040601
  Receipt Date: 20040519
  Transmission Date: 20050107
  Serious: No
  Sender: FDA-Public Use
  Company Number: 2004SE02575

PATIENT
  Age: 16 Year
  Sex: Male

DRUGS (5)
  1. SEROQUEL [Suspect]
     Indication: SCHIZOPHRENIA
     Dosage: {800 MG
     Dates: start: 20030616, end: 20030702
  2. SEROQUEL [Suspect]
     Indication: SCHIZOPHRENIA
     Dosage: 800 MG DAILY PO
     Route: 048
     Dates: start: 20030702, end: 20031114
  3. SEROQUEL [Suspect]
     Indication: SCHIZOPHRENIA
     Dosage: 1000 MG DAILY PO
     Route: 048
     Dates: start: 20031114, end: 20040127
  4. SEROQUEL [Suspect]
     Indication: SCHIZOPHRENIA
     Dosage: 1400 MG DAILY PO
     Route: 048
     Dates: start: 20040127, end: 20040420
  5. SEROQUEL [Suspect]
     Indication: SCHIZOPHRENIA
     Dosage: 1000 MG DAILY PO
     Route: 048
     Dates: start: 20040420

REACTIONS (3)
  - ACTIVITIES OF DAILY LIVING IMPAIRED [None]
  - FATIGUE [None]
  - SINUS TACHYCARDIA [None]
